FAERS Safety Report 6569459-8 (Version None)
Quarter: 2010Q1

REPORT INFORMATION
  Report Type: 
  Country: None (occurrence: None)
  Receive Date: 20100204
  Receipt Date: 20091209
  Transmission Date: 20100710
  Serious: No
  Sender: FDA-Public Use
  Company Number: US-BAYER-200942838NA

PATIENT
  Age: 52 Year
  Sex: Female
  Weight: 70 kg

DRUGS (1)
  1. MIRENA [Suspect]
     Indication: VAGINAL HAEMORRHAGE
     Dosage: CONTINUOUS
     Route: 015
     Dates: start: 20091028, end: 20091201

REACTIONS (8)
  - ACNE PUSTULAR [None]
  - BREAST TENDERNESS [None]
  - HAEMORRHAGE [None]
  - MENOMETRORRHAGIA [None]
  - PREMENSTRUAL SYNDROME [None]
  - PRURITUS [None]
  - URTICARIA [None]
  - VERTIGO [None]
